FAERS Safety Report 23482136 (Version 1)
Quarter: 2024Q1

REPORT INFORMATION
  Report Type: Other
  Country: SA (occurrence: None)
  Receive Date: 20240205
  Receipt Date: 20240205
  Transmission Date: 20240409
  Serious: Yes (Hospitalization)
  Sender: FDA-Public Use
  Company Number: SA-ROCHE-3501005

PATIENT
  Age: 2 Year
  Sex: Male

DRUGS (1)
  1. EMICIZUMAB [Suspect]
     Active Substance: EMICIZUMAB
     Indication: Factor VIII deficiency
     Route: 058

REACTIONS (3)
  - Epistaxis [Recovered/Resolved]
  - Exophthalmos [Recovered/Resolved]
  - Haemophilic pseudotumour [Recovered/Resolved]
